FAERS Safety Report 7048462-8 (Version None)
Quarter: 2010Q4

REPORT INFORMATION
  Report Type: 
  Country: None (occurrence: None)
  Receive Date: 20101015
  Receipt Date: 20101015
  Transmission Date: 20110411
  Serious: Yes (Hospitalization)
  Sender: FDA-Public Use
  Company Number: None

PATIENT
  Age: 57 Year
  Sex: Male
  Weight: 110 kg

DRUGS (1)
  1. DICLOFENAC SODIUM [Suspect]
     Indication: TOOTHACHE
     Dosage: 75 MG BID PO
     Route: 048
     Dates: start: 20100712, end: 20101013

REACTIONS (2)
  - HALLUCINATION [None]
  - RENAL FAILURE ACUTE [None]
